FAERS Safety Report 20156411 (Version 1)
Quarter: 2021Q4

REPORT INFORMATION
  Report Type: Report from Study
  Country: AE (occurrence: AE)
  Receive Date: 20211207
  Receipt Date: 20211207
  Transmission Date: 20220303
  Serious: Yes (Death)
  Sender: FDA-Public Use
  Company Number: AE-NOVARTISPH-NVSC2021AE015848

PATIENT
  Age: 63 Year
  Sex: Female

DRUGS (3)
  1. JADENU [Suspect]
     Active Substance: DEFERASIROX
     Indication: Thalassaemia
     Dosage: 1080 MG, QD
     Route: 048
     Dates: start: 20200913
  2. JADENU [Suspect]
     Active Substance: DEFERASIROX
     Indication: Iron overload
     Dosage: 1800 MG, QD
     Route: 048
     Dates: start: 20200913
  3. JADENU [Suspect]
     Active Substance: DEFERASIROX
     Dosage: 1800 MG, QD
     Route: 048
     Dates: start: 20210119

REACTIONS (3)
  - Death [Fatal]
  - Full blood count abnormal [Unknown]
  - Incorrect dose administered [Unknown]

NARRATIVE: CASE EVENT DATE: 20210119
